FAERS Safety Report 10852522 (Version 1)
Quarter: 2015Q1

REPORT INFORMATION
  Report Type: Spontaneous
  Country: US (occurrence: US)
  Receive Date: 20150222
  Receipt Date: 20150222
  Transmission Date: 20150721
  Serious: Yes (Hospitalization)
  Sender: FDA-Public Use
  Company Number: US-ALLERGAN-1419375US

PATIENT
  Age: 51 Year
  Sex: Female

DRUGS (3)
  1. LEVOTHYROXINE [Concomitant]
     Active Substance: LEVOTHYROXINE
     Indication: HYPOTHYROIDISM
     Dosage: 50 ?G, QD
     Route: 048
  2. ZYRTEC [Concomitant]
     Active Substance: CETIRIZINE HYDROCHLORIDE
     Indication: HYPERSENSITIVITY
     Dosage: 10 MG, QD
     Route: 048
  3. BOTOX [Suspect]
     Active Substance: ONABOTULINUMTOXINA
     Indication: TORTICOLLIS
     Dosage: 100 UNITS, SINGLE
     Route: 030
     Dates: start: 20140701, end: 20140701

REACTIONS (21)
  - Musculoskeletal pain [Not Recovered/Not Resolved]
  - Chills [Recovered/Resolved]
  - Impaired work ability [Not Recovered/Not Resolved]
  - Dysphagia [Unknown]
  - Feeling jittery [Unknown]
  - Nervousness [Unknown]
  - Insomnia [Unknown]
  - Hypoaesthesia [Not Recovered/Not Resolved]
  - Headache [Unknown]
  - Hypoaesthesia [Unknown]
  - Vision blurred [Unknown]
  - Myalgia [Not Recovered/Not Resolved]
  - Eating disorder [Unknown]
  - Torticollis [Unknown]
  - Diplopia [Unknown]
  - Torticollis [Not Recovered/Not Resolved]
  - Choking sensation [Unknown]
  - Dysgraphia [Unknown]
  - Weight abnormal [Unknown]
  - Pyrexia [Recovered/Resolved]
  - Swelling face [Unknown]

NARRATIVE: CASE EVENT DATE: 20140707
